FAERS Safety Report 7038213-5 (Version None)
Quarter: 2010Q4

REPORT INFORMATION
  Report Type: 
  Country: None (occurrence: None)
  Receive Date: 20101011
  Receipt Date: 20100928
  Transmission Date: 20110411
  Serious: Yes (Other)
  Sender: FDA-Public Use
  Company Number: GB-MYLANLABS-2010S1017911

PATIENT
  Sex: Female

DRUGS (12)
  1. ALENDRONATE SODIUM [Suspect]
     Indication: PRODUCT USED FOR UNKNOWN INDICATION
     Route: 048
     Dates: start: 20100902, end: 20100916
  2. ASPIRIN [Concomitant]
     Indication: ESSENTIAL HYPERTENSION
     Route: 048
  3. BUDESONIDE [Concomitant]
     Indication: ASTHMA
     Route: 055
  4. COLECALCIFEROL [Concomitant]
     Indication: OSTEOPOROSIS
     Route: 048
  5. E45 ITCH RELIEF [Concomitant]
     Indication: SKIN DISORDER
  6. FORMOTEROL FUMARATE [Concomitant]
     Indication: ASTHMA
     Route: 055
  7. ISPAGHULA HUSK /00029101/ [Concomitant]
     Indication: ABDOMINAL PAIN LOWER
     Route: 048
  8. LATANOPROST [Concomitant]
     Indication: GLAUCOMA
  9. LERCANIDIPINE [Concomitant]
     Indication: ESSENTIAL HYPERTENSION
     Route: 048
  10. RISEDRONATE SODIUM [Concomitant]
     Indication: OSTEOPOROSIS
     Route: 048
  11. ROCALTROL [Concomitant]
     Indication: OSTEOPOROSIS
     Route: 048
  12. SALBUTAMOL [Concomitant]
     Indication: ASTHMA
     Route: 055

REACTIONS (2)
  - DYSPHONIA [None]
  - PALPITATIONS [None]
